FAERS Safety Report 4285798-8 (Version None)
Quarter: 2004Q1

REPORT INFORMATION
  Report Type: 
  Country: None (occurrence: None)
  Receive Date: 20040203
  Receipt Date: 20040203
  Transmission Date: 20041129
  Serious: Yes (Death, Other)
  Sender: FDA-Public Use
  Company Number: None

PATIENT
  Age: 79 Year
  Sex: Male
  Weight: 82 kg

DRUGS (1)
  1. DAUNORUBICIN HCL [Suspect]
     Indication: MYELODYSPLASTIC SYNDROME
     Dosage: 45 MG/M2 IV DAYS 1, 3
     Route: 042
     Dates: start: 20031205

REACTIONS (7)
  - ARRHYTHMIA SUPRAVENTRICULAR [None]
  - ATAXIA [None]
  - CONFUSIONAL STATE [None]
  - DEPRESSED LEVEL OF CONSCIOUSNESS [None]
  - DYSPNOEA [None]
  - HALLUCINATION [None]
  - TROPONIN INCREASED [None]
